FAERS Safety Report 7534257-5 (Version None)
Quarter: 2011Q2

REPORT INFORMATION
  Report Type: 
  Country: None (occurrence: None)
  Receive Date: 20110608
  Receipt Date: 20070126
  Transmission Date: 20111010
  Serious: Yes (Hospitalization, Other)
  Sender: FDA-Public Use
  Company Number: PHHO2007JP02075

PATIENT
  Sex: Female

DRUGS (3)
  1. HYPOCA [Concomitant]
     Indication: HYPERTENSION
  2. DIOVAN [Suspect]
     Indication: HYPERTENSION
     Dosage: 80 MG, QD
     Route: 048
     Dates: start: 20030310, end: 20031106
  3. BUFFERIN [Concomitant]
     Indication: CEREBRAL INFARCTION

REACTIONS (2)
  - DEMENTIA [None]
  - THERMAL BURN [None]
